FAERS Safety Report 7152730-9 (Version None)
Quarter: 2010Q4

REPORT INFORMATION
  Report Type: 
  Country: None (occurrence: None)
  Receive Date: 20101213
  Receipt Date: 20101201
  Transmission Date: 20110411
  Serious: Yes (Hospitalization, Other)
  Sender: FDA-Public Use
  Company Number: DE-GENZYME-CAMP-1001059

PATIENT
  Sex: Male
  Weight: 88 kg

DRUGS (8)
  1. CAMPATH [Suspect]
     Indication: CHRONIC LYMPHOCYTIC LEUKAEMIA
     Dosage: 30 MG, TIW
     Route: 042
     Dates: start: 20071001, end: 20080101
  2. CAMPATH [Suspect]
     Dosage: UNK
     Route: 065
     Dates: start: 20100101, end: 20100401
  3. INNOHEP [Concomitant]
     Indication: THROMBOSIS
     Dosage: 0.8 ML, QD
     Route: 058
     Dates: start: 20100801
  4. SELENASE [Concomitant]
     Indication: SUPPORTIVE CARE
     Dosage: 1 AMPULE,  UNK
     Route: 048
     Dates: start: 20100401
  5. SYMBION [Concomitant]
     Indication: SUPPORTIVE CARE
     Dosage: 1 CAPSULE, UNK
     Route: 065
     Dates: start: 20100401
  6. ACICLOVIR [Concomitant]
     Indication: PRODUCT USED FOR UNKNOWN INDICATION
     Dosage: 400 MG, QID
  7. FERROUS SULFATE TAB [Concomitant]
     Indication: PRODUCT USED FOR UNKNOWN INDICATION
     Dosage: UNK
     Route: 065
     Dates: end: 20100905
  8. FRAXIPARIN [Suspect]
     Indication: PRODUCT USED FOR UNKNOWN INDICATION
     Dosage: 0.6 UNK, QD
     Route: 065

REACTIONS (13)
  - ANAEMIA HAEMOLYTIC AUTOIMMUNE [None]
  - BLOOD GLUCOSE INCREASED [None]
  - CARDIAC FAILURE [None]
  - DEEP VEIN THROMBOSIS [None]
  - DYSPNOEA [None]
  - FATIGUE [None]
  - INFUSION SITE INFECTION [None]
  - NEUTROPENIA [None]
  - PLEURAL EFFUSION [None]
  - PSEUDOMONAL SEPSIS [None]
  - SINUS TACHYCARDIA [None]
  - VENTRICULAR EXTRASYSTOLES [None]
  - WARM TYPE HAEMOLYTIC ANAEMIA [None]
